FAERS Safety Report 8045681-9 (Version None)
Quarter: 2012Q1

REPORT INFORMATION
  Report Type: 
  Country: None (occurrence: None)
  Receive Date: 20120113
  Receipt Date: 20120111
  Transmission Date: 20120608
  Serious: No
  Sender: FDA-Public Use
  Company Number: US-BAYER-2012-004058

PATIENT
  Age: 73 Year
  Sex: Male

DRUGS (2)
  1. LEVITRA [Suspect]
     Indication: ERECTILE DYSFUNCTION
     Dosage: 20 MG, PRN
     Route: 048
     Dates: start: 20100101
  2. IBUPROFEN [Concomitant]

REACTIONS (5)
  - ERECTILE DYSFUNCTION [None]
  - NASAL CONGESTION [None]
  - HEADACHE [None]
  - VISUAL IMPAIRMENT [None]
  - EYE DISORDER [None]
